FAERS Safety Report 25263078 (Version 1)
Quarter: 2025Q2

REPORT INFORMATION
  Report Type: Spontaneous
  Country: CN (occurrence: CN)
  Receive Date: 20250502
  Receipt Date: 20250502
  Transmission Date: 20250717
  Serious: Yes (Hospitalization, Other)
  Sender: BIOGEN
  Company Number: CN-BAT-2025BAT000408

PATIENT
  Age: 67 Year
  Sex: Male

DRUGS (8)
  1. TOFIDENCE [Suspect]
     Active Substance: TOCILIZUMAB-BAVI
     Indication: Diffuse large B-cell lymphoma
     Route: 041
     Dates: start: 20250410, end: 20250410
  2. TOFIDENCE [Suspect]
     Active Substance: TOCILIZUMAB-BAVI
     Indication: Diffuse large B-cell lymphoma
     Route: 041
     Dates: start: 20250412, end: 20250412
  3. CYCLOPHOSPHAMIDE [Suspect]
     Active Substance: CYCLOPHOSPHAMIDE
     Indication: Diffuse large B-cell lymphoma
     Route: 041
     Dates: start: 20250404, end: 20250406
  4. FLUDARABINE PHOSPHATE [Suspect]
     Active Substance: FLUDARABINE PHOSPHATE
     Indication: Diffuse large B-cell lymphoma
     Route: 041
     Dates: start: 20250404, end: 20250406
  5. SODIUM CHLORIDE [Concomitant]
     Active Substance: SODIUM CHLORIDE
     Indication: Vehicle solution use
     Route: 041
     Dates: start: 20250410, end: 20250410
  6. SODIUM CHLORIDE [Concomitant]
     Active Substance: SODIUM CHLORIDE
     Indication: Vehicle solution use
     Route: 041
     Dates: start: 20250412, end: 20250412
  7. SODIUM CHLORIDE [Concomitant]
     Active Substance: SODIUM CHLORIDE
     Indication: Vehicle solution use
     Route: 041
     Dates: start: 20250404, end: 20250406
  8. SODIUM CHLORIDE [Concomitant]
     Active Substance: SODIUM CHLORIDE
     Indication: Vehicle solution use
     Route: 041
     Dates: start: 20250404, end: 20250406

REACTIONS (2)
  - Myelosuppression [Not Recovered/Not Resolved]
  - Product use in unapproved indication [Unknown]

NARRATIVE: CASE EVENT DATE: 20250410
